FAERS Safety Report 7755500-3 (Version None)
Quarter: 2011Q3

REPORT INFORMATION
  Report Type: 
  Country: None (occurrence: None)
  Receive Date: 20110916
  Receipt Date: 20110915
  Transmission Date: 20111222
  Serious: Yes (Other)
  Sender: FDA-Public Use
  Company Number: BR-PFIZER INC-2011205680

PATIENT
  Age: 40 Year
  Sex: Male

DRUGS (6)
  1. RANITIDINE [Concomitant]
     Dosage: 150 MG, 1X/DAY
     Route: 048
  2. SUTENT [Suspect]
     Indication: RENAL CELL CARCINOMA
     Dosage: 50 MG, 1X/DAY
     Route: 048
     Dates: start: 20101215
  3. DIPYRONE TAB [Concomitant]
     Dosage: 40 DROPS EVERY 6 HOURS (4X/DAY)
     Route: 048
  4. BROMOPRIDE [Concomitant]
     Dosage: 10MG AT EACH MEAL (FREQUENCY UNSPECIFIED)
     Route: 048
  5. NYSTATIN [Concomitant]
     Dosage: 10ML EVERY 8 HOURS
     Route: 048
  6. LACTULOSE [Concomitant]
     Indication: CONSTIPATION
     Dosage: 10ML IF CONSTIPATION
     Route: 048

REACTIONS (8)
  - IRRITABILITY [None]
  - DECREASED APPETITE [None]
  - SKIN DISCOLOURATION [None]
  - ASTHENIA [None]
  - DIARRHOEA [None]
  - RASH [None]
  - NAIL DISORDER [None]
  - HAIR DISORDER [None]
